FAERS Safety Report 9543280 (Version 3)
Quarter: 2013Q4

REPORT INFORMATION
  Report Type: Spontaneous
  Country: US (occurrence: US)
  Receive Date: 20130923
  Receipt Date: 20131104
  Transmission Date: 20140711
  Serious: Yes (Hospitalization, Other)
  Sender: FDA-Public Use
  Company Number: US-PFIZER INC-2013270645

PATIENT
  Age: 79 Year
  Sex: Male
  Weight: 72.56 kg

DRUGS (8)
  1. TIKOSYN [Suspect]
     Indication: ATRIAL FIBRILLATION
     Dosage: 500 UG, 2X/DAY
     Route: 048
     Dates: start: 2009
  2. TIKOSYN [Suspect]
     Dosage: 250 UG, 2X/DAY
     Route: 048
     Dates: start: 20130116, end: 20130123
  3. TIKOSYN [Suspect]
     Dosage: 375 UG (BY TAKING ONE CAPSULE OF 125 MCG AND ONE CAPSULE OF 250 MCG) , 2X/DAY
     Route: 048
     Dates: start: 201304
  4. METOPROLOL [Concomitant]
     Indication: HYPERTENSION
     Dosage: 25 MG, 2X/DAY
  5. LOSARTAN [Concomitant]
     Indication: HYPERTENSION
     Dosage: 100 MG, UNK
  6. XARELTO [Concomitant]
     Indication: EMBOLISM
     Dosage: 20 MG, UNK
  7. XARELTO [Concomitant]
     Indication: ANTICOAGULANT THERAPY
  8. FLOMAX [Concomitant]
     Indication: PROSTATOMEGALY
     Dosage: UNK

REACTIONS (8)
  - Electrocardiogram ST segment elevation [Unknown]
  - Atrial flutter [Unknown]
  - Sinus arrhythmia [Unknown]
  - Bradycardia [Unknown]
  - Electrocardiogram change [Unknown]
  - Electrocardiogram PR prolongation [Unknown]
  - Electrocardiogram QT prolonged [Unknown]
  - Drug ineffective [Unknown]
